FAERS Safety Report 25019043 (Version 3)
Quarter: 2025Q3

REPORT INFORMATION
  Report Type: Spontaneous
  Country: EU (occurrence: EU)
  Receive Date: 20250227
  Receipt Date: 20250802
  Transmission Date: 20251020
  Serious: Yes (Hospitalization, Other)
  Sender: ALEXION PHARMACEUTICALS
  Company Number: 6000008289-001

PATIENT
  Age: 35 Year
  Sex: Male

DRUGS (6)
  1. SEROQUEL [Suspect]
     Active Substance: QUETIAPINE FUMARATE
     Indication: Schizophrenia
     Dosage: 400 MILLIGRAM, QD
     Dates: start: 20021121, end: 20021203
  2. SEROQUEL [Suspect]
     Active Substance: QUETIAPINE FUMARATE
     Dosage: UNK UNK, QD
  3. ZOLOFT [Suspect]
     Active Substance: SERTRALINE HYDROCHLORIDE
     Dosage: 50 MILLIGRAM, QD
     Dates: start: 20021122, end: 20021205
  4. MELPERONE HYDROCHLORIDE [Suspect]
     Active Substance: MELPERONE HYDROCHLORIDE
     Dosage: UNK UNK, QD
     Dates: start: 20021125
  5. Tavor [Concomitant]
     Dosage: UNK UNK, QD
     Dates: start: 20021120, end: 20021121
  6. Tavor [Concomitant]
     Dosage: UNK UNK, QD
     Dates: start: 20021122, end: 20021124

REACTIONS (3)
  - Generalised tonic-clonic seizure [Recovered/Resolved]
  - Multiple fractures [Recovered/Resolved]
  - Fall [Recovered/Resolved]

NARRATIVE: CASE EVENT DATE: 20021126
